FAERS Safety Report 6810526-9 (Version None)
Quarter: 2010Q2

REPORT INFORMATION
  Report Type: 
  Country: None (occurrence: None)
  Receive Date: 20100630
  Receipt Date: 20100616
  Transmission Date: 20101027
  Serious: Yes (Other)
  Sender: FDA-Public Use
  Company Number: ES-ELI_LILLY_AND_COMPANY-ES201006004236

PATIENT
  Sex: Female
  Weight: 69 kg

DRUGS (6)
  1. FORTEO [Suspect]
     Indication: OSTEOPOROSIS
     Dosage: 20 UG, DAILY (1/D)
     Route: 058
  2. ESPIRIDE [Concomitant]
     Indication: DIARRHOEA
     Dosage: 1 WEEK A MONTH; 4 C/24H, OTHER
     Route: 048
  3. PACATAL [Concomitant]
     Indication: PAIN
     Dosage: 37.5 MG, DAILY (1/D)
     Route: 048
  4. IBUPROFENO [Concomitant]
     Indication: PAIN
     Dosage: 600 MG, 3/D
     Route: 048
  5. OMEPRAZOLE [Concomitant]
     Indication: GASTRIC DISORDER
     Dosage: 20 MG, DAILY (1/D)
     Route: 048
  6. PARAPRES [Concomitant]
     Indication: CARDIAC DISORDER
     Dosage: 16 MG 1/2 C/24H, UNK
     Route: 065

REACTIONS (1)
  - SPINAL COMPRESSION FRACTURE [None]
